FAERS Safety Report 5706022-2 (Version None)
Quarter: 2008Q2

REPORT INFORMATION
  Report Type: 
  Country: None (occurrence: None)
  Receive Date: 20080411
  Receipt Date: 20080326
  Transmission Date: 20081010
  Serious: Yes (Hospitalization)
  Sender: FDA-Public Use
  Company Number: TRP_01037_2008

PATIENT
  Sex: Male
  Weight: 68.9467 kg

DRUGS (22)
  1. INFERGEN [Suspect]
     Indication: HEPATITIS C VIRUS
     Dosage: 0.5 ML QD SUBCUTANEOUS; 0.3 ML QD SUBCUTANEOUS; DF SUBCUTANEOUS
     Route: 058
     Dates: start: 20071204, end: 20080102
  2. INFERGEN [Suspect]
     Indication: HEPATITIS C VIRUS
     Dosage: 0.5 ML QD SUBCUTANEOUS; 0.3 ML QD SUBCUTANEOUS; DF SUBCUTANEOUS
     Route: 058
     Dates: start: 20080103, end: 20080123
  3. INFERGEN [Suspect]
     Indication: HEPATITIS C VIRUS
     Dosage: 0.5 ML QD SUBCUTANEOUS; 0.3 ML QD SUBCUTANEOUS; DF SUBCUTANEOUS
     Route: 058
     Dates: start: 20080101, end: 20080303
  4. REBETOL [Suspect]
     Indication: HEPATITIS C VIRUS
     Dosage: 400 MG BID ORAL
     Route: 048
     Dates: start: 20071204, end: 20080123
  5. CARAFATE [Concomitant]
  6. NEXIUM CPDR [Concomitant]
  7. REGLAN [Concomitant]
  8. CELEXA [Concomitant]
  9. ALLOPURINOL [Concomitant]
  10. PIROXICAM [Concomitant]
  11. METHADONE HCL [Concomitant]
  12. XANAX [Concomitant]
  13. PHENERGAN [Concomitant]
  14. VITAMIN AND MINERAL PRENATAL SUPPLEMENT W/ FOLIC ACID CAP [Concomitant]
  15. ECHINACEA [Concomitant]
  16. ESTER C (VITAMIN C) [Concomitant]
  17. VITAMIN D [Concomitant]
  18. CASCARA TAB [Concomitant]
  19. TRIAMCINOLONE ACETONIDE [Concomitant]
  20. TRANSDERM SCOPOLAMINE PT72 [Concomitant]
  21. PREDNISONE [Concomitant]
  22. AMBIEN [Concomitant]

REACTIONS (30)
  - ANAEMIA [None]
  - ANOREXIA [None]
  - BLOOD ALBUMIN DECREASED [None]
  - BLOOD BICARBONATE DECREASED [None]
  - BLOOD CALCIUM DECREASED [None]
  - BLOOD GLUCOSE INCREASED [None]
  - BLOOD POTASSIUM DECREASED [None]
  - DECREASED APPETITE [None]
  - DEHYDRATION [None]
  - DIARRHOEA [None]
  - DRY MOUTH [None]
  - DRY SKIN [None]
  - DYSPHAGIA [None]
  - ENTERITIS [None]
  - FEELING ABNORMAL [None]
  - INFLUENZA LIKE ILLNESS [None]
  - INJECTION SITE PAIN [None]
  - INJECTION SITE REACTION [None]
  - LYMPHOCYTE COUNT DECREASED [None]
  - PHARYNGEAL OEDEMA [None]
  - PHARYNGOLARYNGEAL PAIN [None]
  - PLATELET COUNT DECREASED [None]
  - PROTEIN TOTAL DECREASED [None]
  - RASH [None]
  - RED BLOOD CELL COUNT DECREASED [None]
  - SCLERODACTYLIA [None]
  - VIRAL LOAD INCREASED [None]
  - VOMITING [None]
  - WEIGHT DECREASED [None]
  - WHITE BLOOD CELL COUNT DECREASED [None]
